FAERS Safety Report 9704151 (Version 1)
Quarter: 2013Q4

REPORT INFORMATION
  Report Type: Spontaneous
  Country: US (occurrence: US)
  Receive Date: 20131122
  Receipt Date: 20131122
  Transmission Date: 20140711
  Serious: No
  Sender: FDA-Public Use
  Company Number: US-GLAXOSMITHKLINE-A1028186A

PATIENT
  Sex: Female

DRUGS (5)
  1. WELLBUTRIN SR [Suspect]
     Indication: MAJOR DEPRESSION
     Dosage: 150MG PER DAY
     Route: 048
  2. ZOCOR [Concomitant]
  3. LORAZEPAM [Concomitant]
  4. SYNTHROID [Concomitant]
  5. CITALOPRAM [Concomitant]

REACTIONS (1)
  - Labelled drug-disease interaction medication error [Unknown]
